FAERS Safety Report 4554708-8 (Version None)
Quarter: 2004Q4

REPORT INFORMATION
  Report Type: 
  Country: None (occurrence: None)
  Receive Date: 20041227
  Receipt Date: 20040901
  Transmission Date: 20050328
  Serious: No
  Sender: FDA-Public Use
  Company Number: US089424

PATIENT
  Age: 57 Year
  Sex: Female

DRUGS (6)
  1. SENSIPAR [Suspect]
     Indication: HYPERPARATHYROIDISM SECONDARY
     Dosage: 60 MG, 1 IN 1 DAYS, PO
     Route: 048
     Dates: start: 20040601
  2. GEFITINIB [Concomitant]
  3. SEVELAMER HCL [Concomitant]
  4. CLONAZEPAM [Concomitant]
  5. LOSARTAN POTASSIUM [Concomitant]
  6. EPOGEN [Concomitant]

REACTIONS (2)
  - NAUSEA [None]
  - RESTLESS LEGS SYNDROME [None]
